FAERS Safety Report 24082319 (Version 1)
Quarter: 2024Q3

REPORT INFORMATION
  Report Type: Spontaneous
  Country: JP (occurrence: JP)
  Receive Date: 20240712
  Receipt Date: 20240712
  Transmission Date: 20241016
  Serious: Yes (Hospitalization, Other)
  Sender: ALK-ABELLO
  Company Number: JP-ALK-ABELLO A/S-2024AA001446

PATIENT

DRUGS (2)
  1. MITICURE [Suspect]
     Active Substance: DERMATOPHAGOIDES FARINAE\DERMATOPHAGOIDES PTERONYSSINUS
     Indication: Rhinitis allergic
     Dosage: 3300 JAU, QD
     Route: 060
     Dates: start: 202210, end: 202210
  2. MITICURE [Suspect]
     Active Substance: DERMATOPHAGOIDES FARINAE\DERMATOPHAGOIDES PTERONYSSINUS
     Dosage: 10000 JAU, QD
     Route: 060
     Dates: start: 202210

REACTIONS (4)
  - Urinary occult blood [Not Recovered/Not Resolved]
  - COVID-19 [Unknown]
  - IgA nephropathy [Unknown]
  - Protein urine [Not Recovered/Not Resolved]

NARRATIVE: CASE EVENT DATE: 20231201
